FAERS Safety Report 20473665 (Version 1)
Quarter: 2022Q1

REPORT INFORMATION
  Report Type: Spontaneous
  Country: KW (occurrence: KW)
  Receive Date: 20220215
  Receipt Date: 20220215
  Transmission Date: 20220423
  Serious: Yes (Other)
  Sender: FDA-Public Use
  Company Number: KW-LUPIN PHARMACEUTICALS INC.-2022-01973

PATIENT
  Age: 17 Year
  Sex: Male

DRUGS (3)
  1. BUPROPION [Suspect]
     Active Substance: BUPROPION
     Indication: Major depression
     Dosage: 75 MG, QD (IMMEDIATE-RELEASE FORMULATION)
     Route: 065
  2. BUPROPION [Suspect]
     Active Substance: BUPROPION
     Indication: Depression
     Dosage: 75 MG, BID (IMMEDIATE-RELEASE FORMULATION)
     Route: 065
  3. BUPROPION [Suspect]
     Active Substance: BUPROPION
     Dosage: 225 MG, QD
     Route: 065

REACTIONS (2)
  - Electrocardiogram QT prolonged [Recovered/Resolved]
  - Off label use [Unknown]
